FAERS Safety Report 10260260 (Version 1)
Quarter: 2014Q2

REPORT INFORMATION
  Report Type: Spontaneous
  Country: US (occurrence: US)
  Receive Date: 20140625
  Receipt Date: 20140625
  Transmission Date: 20141212
  Serious: No
  Sender: FDA-Public Use
  Company Number: US-SA-2014SA046921

PATIENT
  Sex: Female

DRUGS (2)
  1. AUBAGIO [Suspect]
     Indication: PRODUCT USED FOR UNKNOWN INDICATION
     Route: 065
  2. AMPYRA [Suspect]
     Indication: PRODUCT USED FOR UNKNOWN INDICATION
     Route: 065
     Dates: start: 20121115

REACTIONS (6)
  - Gait disturbance [Unknown]
  - Tremor [Unknown]
  - Fatigue [Unknown]
  - Fall [Unknown]
  - Arthropathy [Unknown]
  - Drug dose omission [Unknown]
